FAERS Safety Report 7001434-1 (Version None)
Quarter: 2010Q3

REPORT INFORMATION
  Report Type: 
  Country: None (occurrence: None)
  Receive Date: 20100920
  Receipt Date: 20100121
  Transmission Date: 20110219
  Serious: No
  Sender: FDA-Public Use
  Company Number: US-ASTRAZENECA-2010SE02874

PATIENT
  Age: 45 Year
  Sex: Male

DRUGS (2)
  1. SEROQUEL [Suspect]
     Dosage: AS REQUIRED ONE PERSCRIPTION OF 30 PILLS
     Route: 048
  2. SEROQUEL [Suspect]
     Route: 048
     Dates: start: 20090101

REACTIONS (4)
  - FEELING JITTERY [None]
  - INTENTIONAL DRUG MISUSE [None]
  - MUSCLE SPASMS [None]
  - THERAPEUTIC RESPONSE UNEXPECTED [None]
